FAERS Safety Report 5320759-9 (Version None)
Quarter: 2007Q2

REPORT INFORMATION
  Report Type: 
  Country: None (occurrence: None)
  Receive Date: 20070425
  Receipt Date: 20070413
  Transmission Date: 20071010
  Serious: Yes (Other)
  Sender: FDA-Public Use
  Company Number: 2007BH003555

PATIENT
  Age: 43 Year
  Sex: Male

DRUGS (3)
  1. IGIV, UNSPECIFIED PRODUCT  (IMMUNOGLOBULIN HUMAN NORMAL) [Suspect]
     Indication: HAEMORRHAGE PROPHYLAXIS
     Dosage: 400 MG/KG; UNK; IV
     Route: 042
  2. NITRATES [Concomitant]
  3. BETA BLOCKERS [Concomitant]

REACTIONS (2)
  - LEFT VENTRICULAR DYSFUNCTION [None]
  - MYOCARDIAL INFARCTION [None]
